FAERS Safety Report 17566136 (Version 1)
Quarter: 2020Q1

REPORT INFORMATION
  Report Type: Spontaneous
  Country: FR (occurrence: FR)
  Receive Date: 20200320
  Receipt Date: 20200320
  Transmission Date: 20200409
  Serious: Yes (Hospitalization, Disabling)
  Sender: FDA-Public Use
  Company Number: FR-TEVA-2020-FR-1207491

PATIENT
  Age: 72 Year
  Sex: Male

DRUGS (11)
  1. SPECIAFOLDINE [Concomitant]
     Active Substance: FOLIC ACID
  2. PRIMPERAN [Concomitant]
     Active Substance: METOCLOPRAMIDE HYDROCHLORIDE
  3. ACTONEL [Suspect]
     Active Substance: RISEDRONATE SODIUM
     Indication: POLYCHONDRITIS
     Route: 048
     Dates: start: 20191107
  4. CALCIDOSE VITAMINE D, POUDRE ORALE EN SACHET-DOSE [Concomitant]
     Active Substance: CALCIUM\CHOLECALCIFEROL
  5. CORTANCYL 5 MG, COMPRIM? [Concomitant]
     Active Substance: PREDNISONE
  6. CLAMOXYL [AMOXICILLIN] [Suspect]
     Active Substance: AMOXICILLIN
     Indication: DIARRHOEA
     Dosage: NON RENSEIGN?E
     Dates: start: 20191215, end: 20191220
  7. DOLIPRANE [Concomitant]
     Active Substance: ACETAMINOPHEN
  8. DIFFU K, G?LULE [Concomitant]
     Active Substance: POTASSIUM CHLORIDE
  9. EXJADE [Concomitant]
     Active Substance: DEFERASIROX
  10. VIDAZA [Suspect]
     Active Substance: AZACITIDINE
     Indication: MYELODYSPLASTIC SYNDROME
     Dosage: NON RENSEIGN?E
     Route: 042
     Dates: start: 20191118, end: 20191218
  11. ARANESP [Concomitant]
     Active Substance: DARBEPOETIN ALFA

REACTIONS (1)
  - Posterior reversible encephalopathy syndrome [Recovering/Resolving]

NARRATIVE: CASE EVENT DATE: 20191218
